FAERS Safety Report 10797602 (Version 2)
Quarter: 2016Q1

REPORT INFORMATION
  Report Type: Spontaneous
  Country: US (occurrence: US)
  Receive Date: 20150216
  Receipt Date: 20160114
  Transmission Date: 20160525
  Serious: Yes (Hospitalization)
  Sender: FDA-Public Use
  Company Number: US-BAYER-2015-022794

PATIENT
  Age: 26 Year
  Sex: Female
  Weight: 125.62 kg

DRUGS (1)
  1. MIRENA [Suspect]
     Active Substance: LEVONORGESTREL
     Indication: CONTRACEPTION
     Dosage: 20 MCG/24HR, CONT
     Route: 015
     Dates: start: 20111129, end: 20130213

REACTIONS (7)
  - Injury [None]
  - Procedural pain [Not Recovered/Not Resolved]
  - Anxiety [None]
  - Embedded device [None]
  - Emotional distress [None]
  - Abdominal pain [None]
  - Depression [None]

NARRATIVE: CASE EVENT DATE: 201302
